FAERS Safety Report 7803445-2 (Version None)
Quarter: 2011Q4

REPORT INFORMATION
  Report Type: 
  Country: None (occurrence: None)
  Receive Date: 20111007
  Receipt Date: 20111003
  Transmission Date: 20120403
  Serious: Yes (Hospitalization, Other)
  Sender: FDA-Public Use
  Company Number: US-ABBOTT-11P-163-0860594-00

PATIENT
  Sex: Female
  Weight: 86.26 kg

DRUGS (9)
  1. FOLIC ACID [Concomitant]
     Indication: VITAMIN SUPPLEMENTATION
  2. LISINOPRIL [Concomitant]
     Indication: CARDIAC DISORDER
  3. IBUPROFEN [Concomitant]
     Indication: PAIN
  4. METOPROLOL TARTRATE [Concomitant]
     Indication: HYPERTENSION
  5. CYMBALTA [Concomitant]
     Indication: DEPRESSION
  6. HUMIRA [Suspect]
     Indication: RHEUMATOID ARTHRITIS
     Dates: start: 20110323
  7. HYDROCODONE BITARTRATE [Concomitant]
     Indication: PAIN
  8. PROAIR HFA [Concomitant]
     Indication: WHEEZING
     Dates: start: 20110801
  9. CYMBALTA [Concomitant]
     Indication: PAIN

REACTIONS (8)
  - ATRIAL FIBRILLATION [None]
  - NASOPHARYNGITIS [None]
  - BRONCHITIS [None]
  - OXYGEN SATURATION DECREASED [None]
  - PAIN IN EXTREMITY [None]
  - INTERVERTEBRAL DISC COMPRESSION [None]
  - PO2 DECREASED [None]
  - DYSPNOEA [None]
